FAERS Safety Report 6068819-1 (Version None)
Quarter: 2009Q1

REPORT INFORMATION
  Report Type: 
  Country: None (occurrence: None)
  Receive Date: 20090206
  Receipt Date: 20090204
  Transmission Date: 20090719
  Serious: Yes (Hospitalization)
  Sender: FDA-Public Use
  Company Number: SE-JNJFOC-20090201261

PATIENT
  Sex: Male

DRUGS (5)
  1. IPREN [Suspect]
     Indication: ARTHRALGIA
     Route: 048
  2. TREO [Suspect]
     Indication: ARTHRALGIA
     Route: 048
  3. NULYTELY [Concomitant]
     Indication: GASTROINTESTINAL MOTILITY DISORDER
     Route: 048
  4. METOPROLOL TARTRATE [Concomitant]
     Indication: HYPERTENSION
     Route: 048
  5. FURIX [Concomitant]
     Route: 048

REACTIONS (3)
  - BLOOD CREATININE INCREASED [None]
  - DYSPNOEA [None]
  - FATIGUE [None]
